FAERS Safety Report 20436741 (Version 1)
Quarter: 2022Q1

REPORT INFORMATION
  Report Type: Report from Study
  Country: TR (occurrence: TR)
  Receive Date: 20220207
  Receipt Date: 20220207
  Transmission Date: 20220424
  Serious: Yes (Death, Other)
  Sender: FDA-Public Use
  Company Number: TR-NOVARTISPH-NVSC2022TR006527

PATIENT
  Age: 57 Year
  Sex: Female
  Weight: 53 kg

DRUGS (1)
  1. ALPELISIB [Suspect]
     Active Substance: ALPELISIB
     Indication: Breast cancer metastatic
     Dosage: 300 MG
     Route: 065
     Dates: start: 20211222, end: 20211224

REACTIONS (4)
  - Hepatic failure [Fatal]
  - Breast cancer [Fatal]
  - Ventricular fibrillation [Unknown]
  - Coma hepatic [Unknown]

NARRATIVE: CASE EVENT DATE: 20211224
